FAERS Safety Report 8006781-2 (Version None)
Quarter: 2011Q4

REPORT INFORMATION
  Report Type: 
  Country: None (occurrence: None)
  Receive Date: 20111227
  Receipt Date: 20111220
  Transmission Date: 20120403
  Serious: Yes (Other)
  Sender: FDA-Public Use
  Company Number: CH-BAYER-2011-122606

PATIENT
  Age: 56 Year
  Sex: Male

DRUGS (2)
  1. VARDENAFIL HYDROCHLORIDE (LEVITRA) [Suspect]
  2. VARDENAFIL HYDROCHLORIDE (LEVITRA) [Suspect]
     Indication: ERECTILE DYSFUNCTION
     Dosage: UNK, PRN

REACTIONS (6)
  - VISION BLURRED [None]
  - VISUAL ACUITY REDUCED [None]
  - CHORIORETINOPATHY [None]
  - CONJUNCTIVAL HAEMORRHAGE [None]
  - DYSMETROPSIA [None]
  - MACULAR DEGENERATION [None]
